FAERS Safety Report 5033507-7 (Version None)
Quarter: 2006Q2

REPORT INFORMATION
  Report Type: 
  Country: None (occurrence: None)
  Receive Date: 20060623
  Receipt Date: 20060615
  Transmission Date: 20061013
  Serious: Yes (Other)
  Sender: FDA-Public Use
  Company Number: CA-AVENTIS-200616420GDDC

PATIENT
  Age: 83 Year
  Sex: Male

DRUGS (15)
  1. KETEK [Suspect]
     Indication: INFECTION
     Route: 048
     Dates: start: 20060614, end: 20060614
  2. KETEK [Suspect]
     Indication: PYREXIA
     Route: 048
     Dates: start: 20060614, end: 20060614
  3. ZOCOR [Concomitant]
     Route: 048
  4. CARDIZEM [Concomitant]
     Route: 048
  5. LASIX [Concomitant]
     Route: 048
  6. ALTACE [Concomitant]
     Route: 048
  7. ASPIRIN [Concomitant]
     Route: 048
  8. IMDUR [Concomitant]
     Route: 048
  9. PROSCAR [Concomitant]
     Indication: BENIGN PROSTATIC HYPERPLASIA
     Route: 048
  10. PANTOPRAZOLE SODIUM [Concomitant]
     Route: 048
  11. SENOKOT [Concomitant]
     Dosage: DOSE: UNK
     Route: 048
  12. COLACE [Concomitant]
     Dosage: DOSE: UNK
     Route: 048
  13. LACTULOSE [Concomitant]
     Dosage: DOSE: UNK
     Route: 048
  14. FLOMAX [Concomitant]
     Indication: BENIGN PROSTATIC HYPERPLASIA
     Route: 048
  15. ACETAMINOPHEN [Concomitant]
     Dosage: DOSE: UNK
     Route: 048

REACTIONS (3)
  - ALANINE AMINOTRANSFERASE INCREASED [None]
  - ASPARTATE AMINOTRANSFERASE INCREASED [None]
  - HEPATIC ENZYME INCREASED [None]
